FAERS Safety Report 7750651-1 (Version None)
Quarter: 2011Q3

REPORT INFORMATION
  Report Type: 
  Country: None (occurrence: None)
  Receive Date: 20110825
  Receipt Date: 20110509
  Transmission Date: 20111222
  Serious: No
  Sender: FDA-Public Use
  Company Number: 329350

PATIENT
  Age: 63 Year
  Sex: Female

DRUGS (3)
  1. VICTOZA [Suspect]
     Indication: TYPE 2 DIABETES MELLITUS
     Dosage: 0.6; 1.2 MG, QD SUBCUTANEOUS
     Route: 058
     Dates: start: 20110401
  2. VICTOZA [Suspect]
     Indication: TYPE 2 DIABETES MELLITUS
     Dosage: 0.6; 1.2 MG, QD SUBCUTANEOUS
     Route: 058
     Dates: start: 20110301, end: 20110401
  3. VICTOZA [Suspect]
     Indication: TYPE 2 DIABETES MELLITUS
     Dosage: 0.6; 1.2 MG, QD SUBCUTANEOUS
     Route: 058
     Dates: start: 20110401, end: 20110401

REACTIONS (2)
  - NAUSEA [None]
  - DYSPEPSIA [None]
